FAERS Safety Report 21582907 (Version 1)
Quarter: 2022Q4

REPORT INFORMATION
  Report Type: Other
  Country: JP (occurrence: None)
  Receive Date: 20221111
  Receipt Date: 20221111
  Transmission Date: 20230113
  Serious: Yes (Other)
  Sender: FDA-Public Use
  Company Number: JP-ROCHE-3214878

PATIENT
  Age: 50 Year
  Sex: Female

DRUGS (4)
  1. BEVACIZUMAB [Suspect]
     Active Substance: BEVACIZUMAB
     Indication: Lung adenocarcinoma
     Route: 065
  2. CARBOPLATIN [Suspect]
     Active Substance: CARBOPLATIN
     Indication: Lung adenocarcinoma
     Route: 065
  3. PACLITAXEL [Suspect]
     Active Substance: PACLITAXEL
     Indication: Lung adenocarcinoma
     Route: 065
  4. ALECTINIB [Concomitant]
     Active Substance: ALECTINIB

REACTIONS (2)
  - Neoplasm progression [Unknown]
  - Disease progression [Unknown]
